FAERS Safety Report 14718943 (Version 1)
Quarter: 2018Q2

REPORT INFORMATION
  Report Type: Spontaneous
  Country: US (occurrence: US)
  Receive Date: 20180405
  Receipt Date: 20180405
  Transmission Date: 20180711
  Serious: Yes (Other)
  Sender: FDA-Public Use
  Company Number: US-BAUSCH-BL-2018-008374

PATIENT
  Age: 49 Year
  Sex: Male

DRUGS (1)
  1. DIASTAT [Suspect]
     Active Substance: DIAZEPAM
     Indication: SEIZURE
     Dosage: AS NEEDED
     Route: 054

REACTIONS (2)
  - Incorrect dose administered [Unknown]
  - Seizure [Not Recovered/Not Resolved]
